FAERS Safety Report 5640332-2 (Version None)
Quarter: 2008Q1

REPORT INFORMATION
  Report Type: 
  Country: None (occurrence: None)
  Receive Date: 20080227
  Receipt Date: 20080218
  Transmission Date: 20080703
  Serious: Yes (Hospitalization)
  Sender: FDA-Public Use
  Company Number: US-BAXTER-2008BH001452

PATIENT
  Age: 53 Year
  Sex: Male
  Weight: 77 kg

DRUGS (7)
  1. HEPARIN SODIUM [Suspect]
     Indication: ANGIOPLASTY
     Route: 042
     Dates: start: 20070831, end: 20070831
  2. REOPRO [Suspect]
     Indication: ANGIOPLASTY
     Dosage: DOSE UNIT:UNKNOWN
     Route: 065
     Dates: start: 20070831, end: 20070831
  3. PLAVIX [Suspect]
     Indication: ANTICOAGULANT THERAPY
     Route: 048
  4. PLAVIX [Concomitant]
     Route: 048
  5. AVAPRO [Concomitant]
     Indication: HYPERTENSION
     Route: 048
  6. CRESTOR [Concomitant]
     Indication: BLOOD CHOLESTEROL INCREASED
     Route: 048
  7. NIASPAN [Concomitant]
     Indication: DRUG USE FOR UNKNOWN INDICATION
     Route: 048

REACTIONS (5)
  - HYPOTENSION [None]
  - LOSS OF CONSCIOUSNESS [None]
  - PLATELET COUNT DECREASED [None]
  - PYREXIA [None]
  - RETROPERITONEAL HAEMORRHAGE [None]
